FAERS Safety Report 22345398 (Version 7)
Quarter: 2024Q3

REPORT INFORMATION
  Report Type: Spontaneous
  Country: CA (occurrence: CA)
  Receive Date: 20230519
  Receipt Date: 20240710
  Transmission Date: 20241017
  Serious: Yes (Other)
  Sender: PFIZER
  Company Number: CA-PFIZER INC-202300165369

PATIENT
  Age: 41 Year
  Sex: Female
  Weight: 80 kg

DRUGS (7)
  1. RUXIENCE [Suspect]
     Active Substance: RITUXIMAB-PVVR
     Indication: Granulomatosis with polyangiitis
     Dosage: 1 G, DAY 1 AND DAY 15
     Route: 042
     Dates: start: 20230516
  2. RUXIENCE [Suspect]
     Active Substance: RITUXIMAB-PVVR
     Indication: Vasculitis
     Dosage: 1 G, DAY 1 AND DAY 15
     Route: 042
     Dates: start: 20230531
  3. RUXIENCE [Suspect]
     Active Substance: RITUXIMAB-PVVR
     Dosage: 500 MG, X 1 DOSE IN SEP 2023
     Route: 042
     Dates: start: 20230914, end: 20230914
  4. RUXIENCE [Suspect]
     Active Substance: RITUXIMAB-PVVR
     Dosage: 500 MG, 1 INFUSION
     Route: 042
     Dates: start: 20240104, end: 20240104
  5. PANTOPRAZOLE [Concomitant]
     Active Substance: PANTOPRAZOLE
     Dosage: UNK
  6. PREDNISONE [Concomitant]
     Active Substance: PREDNISONE
     Dosage: UNK
  7. SEPTRA DS [Concomitant]
     Active Substance: SULFAMETHOXAZOLE\TRIMETHOPRIM
     Dosage: 800/160MG, M-W-F
     Route: 048

REACTIONS (13)
  - Throat irritation [Recovered/Resolved]
  - Swelling [Recovered/Resolved]
  - Swelling [Unknown]
  - Fatigue [Recovered/Resolved]
  - Somnolence [Recovered/Resolved]
  - Abdominal pain [Unknown]
  - Eye swelling [Unknown]
  - Eye pain [Unknown]
  - Visual acuity reduced [Unknown]
  - Symptom recurrence [Unknown]
  - Discomfort [Unknown]
  - Off label use [Unknown]
  - Off label use [Unknown]

NARRATIVE: CASE EVENT DATE: 20230101
